FAERS Safety Report 22933457 (Version 5)
Quarter: 2023Q4

REPORT INFORMATION
  Report Type: Spontaneous
  Country: US (occurrence: US)
  Receive Date: 20230912
  Receipt Date: 20231228
  Transmission Date: 20240110
  Serious: Yes (Hospitalization, Other)
  Sender: FDA-Public Use
  Company Number: US-ABBVIE-5401986

PATIENT
  Sex: Male
  Weight: 46 kg

DRUGS (1)
  1. IMBRUVICA [Suspect]
     Active Substance: IBRUTINIB
     Indication: Chronic lymphocytic leukaemia
     Dosage: 280MG TAKE 1 TABLET BY MOUTH ONCE DAILY. TABLET SHOULD BE TAKEN WITH A GLASS OF WATER.
     Route: 048

REACTIONS (12)
  - Fall [Recovered/Resolved]
  - Anaemia [Not Recovered/Not Resolved]
  - Gastroenteritis viral [Recovered/Resolved]
  - Asthenia [Not Recovered/Not Resolved]
  - Rib fracture [Recovering/Resolving]
  - Fall [Not Recovered/Not Resolved]
  - White blood cell count increased [Unknown]
  - Cerebral haemorrhage [Not Recovered/Not Resolved]
  - Fall [Recovered/Resolved]
  - Skin laceration [Recovering/Resolving]
  - Loss of consciousness [Recovering/Resolving]
  - Somnolence [Unknown]

NARRATIVE: CASE EVENT DATE: 20230101
